FAERS Safety Report 7525357-4 (Version None)
Quarter: 2011Q2

REPORT INFORMATION
  Report Type: 
  Country: None (occurrence: None)
  Receive Date: 20110526
  Receipt Date: 20110513
  Transmission Date: 20111010
  Serious: Yes (Hospitalization)
  Sender: FDA-Public Use
  Company Number: 2011MA005893

PATIENT
  Age: 11 Month
  Sex: Female

DRUGS (1)
  1. PHENOBARBITAL TAB [Suspect]

REACTIONS (9)
  - PYREXIA [None]
  - LYMPHADENOPATHY [None]
  - ASPARTATE AMINOTRANSFERASE INCREASED [None]
  - ALANINE AMINOTRANSFERASE INCREASED [None]
  - HEMIPARESIS [None]
  - EXANTHEMA SUBITUM [None]
  - CEREBRAL ATROPHY [None]
  - FEBRILE CONVULSION [None]
  - DRUG RASH WITH EOSINOPHILIA AND SYSTEMIC SYMPTOMS [None]
